FAERS Safety Report 9061822 (Version 2)
Quarter: 2013Q2

REPORT INFORMATION
  Report Type: Report from Study
  Country: AR (occurrence: AR)
  Receive Date: 20130204
  Receipt Date: 20130501
  Transmission Date: 20140414
  Serious: Yes (Other)
  Sender: FDA-Public Use
  Company Number: PHHY2013AR009006

PATIENT
  Sex: Female

DRUGS (2)
  1. EXFORGE [Suspect]
     Indication: HYPERTENSION
     Dosage: 1 DF, (160/5MG) DAILY
     Route: 048
  2. DIOVAN [Suspect]
     Dosage: UNK UKN, UNK

REACTIONS (1)
  - Abasia [Not Recovered/Not Resolved]
